FAERS Safety Report 11483326 (Version 1)
Quarter: 2015Q3

REPORT INFORMATION
  Report Type: Spontaneous
  Country: FR (occurrence: FR)
  Receive Date: 20150909
  Receipt Date: 20150909
  Transmission Date: 20151125
  Serious: Yes (Hospitalization, Other)
  Sender: FDA-Public Use
  Company Number: FR-ASTRAZENECA-2015SE86479

PATIENT
  Age: 27339 Day
  Sex: Male

DRUGS (16)
  1. CARBAMAZEPINE. [Suspect]
     Active Substance: CARBAMAZEPINE
     Route: 048
     Dates: start: 20140804
  2. LOXAPAC [Suspect]
     Active Substance: LOXAPINE SUCCINATE
     Route: 048
     Dates: start: 20150429
  3. LOXAPAC [Suspect]
     Active Substance: LOXAPINE SUCCINATE
     Route: 030
     Dates: start: 20150421, end: 20150427
  4. LOXAPAC [Suspect]
     Active Substance: LOXAPINE SUCCINATE
     Dosage: AS REQUIRED
     Route: 030
     Dates: start: 20150428
  5. XEROQUEL [Suspect]
     Active Substance: QUETIAPINE FUMARATE
     Route: 048
     Dates: start: 20140807
  6. LOXAPAC [Suspect]
     Active Substance: LOXAPINE SUCCINATE
     Dosage: 25 MG/ML AS REQUIRED
     Route: 048
     Dates: start: 20141104, end: 20150408
  7. XATRAL [Concomitant]
     Active Substance: ALFUZOSIN
     Route: 048
     Dates: start: 20140804
  8. LEVOTHYROX [Concomitant]
     Active Substance: LEVOTHYROXINE
     Route: 048
     Dates: start: 20141030
  9. CLOPIXOL [Suspect]
     Active Substance: ZUCLOPENTHIXOL ACETATE
     Indication: AGITATION
     Dosage: 50 MG/1 ML, ONE VIAL PER DAY AT 12:00
     Route: 030
     Dates: start: 20150407, end: 20150408
  10. LOXAPAC [Suspect]
     Active Substance: LOXAPINE SUCCINATE
     Dosage: 50 MG/2 ML AS REQUIRED
     Route: 030
     Dates: start: 20140804, end: 20150408
  11. NORMACOL [Concomitant]
     Active Substance: KARAYA GUM
     Dosage: 1 SOLUTION PER DAY
     Route: 054
     Dates: start: 20140805
  12. PARKINANE [Concomitant]
     Active Substance: TRIHEXYPHENIDYL HYDROCHLORIDE
     Dosage: 1 CAPSULE PER DAY AT 12:00
     Route: 048
     Dates: start: 20150210, end: 20150407
  13. LORMETAZEPAM [Suspect]
     Active Substance: LORMETAZEPAM
     Route: 048
     Dates: start: 20140804, end: 20150407
  14. SERTRALINE [Suspect]
     Active Substance: SERTRALINE HYDROCHLORIDE
     Route: 048
     Dates: start: 20140804, end: 20150407
  15. HALDOL [Suspect]
     Active Substance: HALOPERIDOL
     Dosage: 2 MG/ML: 40 TO 100 DROPS 3 TIMES PER DAY
     Route: 048
     Dates: start: 20141209
  16. THERALENE [Suspect]
     Active Substance: TRIMEPRAZINE
     Dosage: 40 MG/ML: 20 DROPS PER DAY
     Route: 048
     Dates: start: 20141217

REACTIONS (8)
  - Pneumonia aspiration [Recovered/Resolved]
  - C-reactive protein increased [Unknown]
  - Delirium [Unknown]
  - Blood creatinine decreased [Unknown]
  - Hypoglycaemia [Unknown]
  - Hallucination [Unknown]
  - Leukopenia [Unknown]
  - Anaemia [Unknown]

NARRATIVE: CASE EVENT DATE: 20150304
